FAERS Safety Report 24184279 (Version 1)
Quarter: 2024Q3

REPORT INFORMATION
  Report Type: Spontaneous
  Country: US (occurrence: None)
  Receive Date: 20240806
  Receipt Date: 20240806
  Transmission Date: 20241017
  Serious: Yes (Hospitalization)
  Sender: Public
  Company Number: None

PATIENT
  Age: 87 Year
  Sex: Male

DRUGS (3)
  1. NUPLAZID [Suspect]
     Active Substance: PIMAVANSERIN TARTRATE
     Indication: Parkinson^s disease
     Dosage: 34 MG DAILY ORAL?
     Route: 048
     Dates: start: 20221102
  2. NUPLAZID [Suspect]
     Active Substance: PIMAVANSERIN TARTRATE
     Indication: Hallucination
  3. DEVICE [Suspect]
     Active Substance: DEVICE
     Dates: start: 20221102

REACTIONS (5)
  - Pneumonia [None]
  - Dyspnoea [None]
  - Blood pressure decreased [None]
  - Urinary tract infection [None]
  - Bacterial infection [None]

NARRATIVE: CASE EVENT DATE: 20240803
